FAERS Safety Report 9314039 (Version 4)
Quarter: 2015Q1

REPORT INFORMATION
  Report Type: Report from Study
  Country: DE (occurrence: DE)
  Receive Date: 20130529
  Receipt Date: 20150204
  Transmission Date: 20150721
  Serious: Yes (Hospitalization, Disabling)
  Sender: FDA-Public Use
  Company Number: DE-UCBSA-086822

PATIENT
  Sex: Male
  Weight: 87 kg

DRUGS (10)
  1. FOLIC ACID. [Concomitant]
     Active Substance: FOLIC ACID
     Indication: PRODUCT USED FOR UNKNOWN INDICATION
     Dosage: DOSE : 5 MG,  FREQUENCY : QS
     Route: 048
     Dates: start: 20090924
  2. DEKRISTOL [Concomitant]
     Active Substance: CHOLECALCIFEROL
     Indication: OSTEOPOROSIS
     Dosage: 20000 IU ONCE MONTHLY
     Route: 048
     Dates: start: 20100218
  3. NOVALMINSULFAT [Concomitant]
     Indication: PAIN
     Dosage: 625 MG, 4X/DAY (QID)
     Dates: start: 20120222, end: 20120229
  4. METHOTREXATE [Concomitant]
     Active Substance: METHOTREXATE
     Indication: RHEUMATOID ARTHRITIS
     Dosage: DOSE : 15  MG FREQUENCY : QS
     Route: 058
     Dates: start: 20080825
  5. CERTOLIZUMAB PEGOL RA [Suspect]
     Active Substance: CERTOLIZUMAB PEGOL
     Indication: RHEUMATOID ARTHRITIS
     Route: 058
     Dates: start: 20111111, end: 20121219
  6. MARCUMAR [Concomitant]
     Active Substance: PHENPROCOUMON
     Indication: PULMONARY EMBOLISM
     Dosage: DOSE: AS NEEDED
     Dates: start: 201003
  7. HEPARINNATRIUM [Concomitant]
     Indication: THROMBOSIS PROPHYLAXIS
     Dosage: 3000 IU, ONCE DAILY (QD)
     Route: 058
     Dates: start: 20120222, end: 20120404
  8. AMLODIPINE [Concomitant]
     Active Substance: AMLODIPINE BESYLATE
     Indication: HYPERTENSION
     Dosage: 5 MG, ONCE DAILY (QD)
  9. PREDNISOLONE. [Concomitant]
     Active Substance: PREDNISOLONE
     Indication: RHEUMATOID ARTHRITIS
     Dosage: 2 MG, ONCE DAILY (QD)
     Route: 048
     Dates: start: 20080825
  10. HCT-BETA [Concomitant]
     Indication: HYPERTENSION
     Dosage: 12.5 MG, ONCE DAILY (QD)

REACTIONS (2)
  - Bone infarction [Not Recovered/Not Resolved]
  - Nephrolithiasis [Recovered/Resolved]

NARRATIVE: CASE EVENT DATE: 20121113
